FAERS Safety Report 17113184 (Version 1)
Quarter: 2019Q4

REPORT INFORMATION
  Report Type: Spontaneous
  Country: US (occurrence: US)
  Receive Date: 20191204
  Receipt Date: 20191204
  Transmission Date: 20200122
  Serious: Yes (Other)
  Sender: FDA-Public Use
  Company Number: US-TEVA-2019-US-1146220

PATIENT
  Age: 63 Year
  Sex: Female

DRUGS (1)
  1. COPAXONE [Suspect]
     Active Substance: GLATIRAMER ACETATE
     Indication: MULTIPLE SCLEROSIS
     Dosage: COPAXONE: 40 MG/ML 3 TIMES PER WEEK
     Route: 058
     Dates: start: 20160609

REACTIONS (2)
  - Foot fracture [Unknown]
  - Product dose omission [Unknown]

NARRATIVE: CASE EVENT DATE: 20191015
